FAERS Safety Report 7502841-0 (Version None)
Quarter: 2011Q2

REPORT INFORMATION
  Report Type: 
  Country: None (occurrence: None)
  Receive Date: 20110525
  Receipt Date: 20100816
  Transmission Date: 20111010
  Serious: No
  Sender: FDA-Public Use
  Company Number: US-NOVEN-ALL1-2010-04328

PATIENT

DRUGS (1)
  1. DAYTRANA [Suspect]
     Dosage: UNK MG 10 MG PATCH CUT IN HALF, 1X/DAY:QD
     Route: 062
     Dates: start: 20100601

REACTIONS (2)
  - WRONG TECHNIQUE IN DRUG USAGE PROCESS [None]
  - NO ADVERSE EVENT [None]
